FAERS Safety Report 15875820 (Version 3)
Quarter: 2021Q1

REPORT INFORMATION
  Report Type: Other
  Country: US (occurrence: US)
  Receive Date: 20190126
  Receipt Date: 20210125
  Transmission Date: 20210419
  Serious: No
  Sender: FDA-Public Use
  Company Number: US-ACORDA-ACO_155026_2018

PATIENT
  Age: 84 Year
  Sex: Female

DRUGS (1)
  1. AMPYRA [Suspect]
     Active Substance: DALFAMPRIDINE
     Indication: MULTIPLE SCLEROSIS
     Dosage: 10 MILLIGRAM, QD
     Route: 048

REACTIONS (12)
  - Pruritus [Not Recovered/Not Resolved]
  - Erythema [Unknown]
  - Arthritis [Not Recovered/Not Resolved]
  - Pain in extremity [Not Recovered/Not Resolved]
  - Dizziness [Unknown]
  - Insomnia [Not Recovered/Not Resolved]
  - Balance disorder [Unknown]
  - Nausea [Unknown]
  - Hypoaesthesia [Unknown]
  - Gait disturbance [Unknown]
  - Back pain [Not Recovered/Not Resolved]
  - Asthenia [Not Recovered/Not Resolved]

NARRATIVE: CASE EVENT DATE: 20181119
